FAERS Safety Report 14987914 (Version 1)
Quarter: 2018Q2

REPORT INFORMATION
  Report Type: Spontaneous
  Country: US (occurrence: US)
  Receive Date: 20180519
  Receipt Date: 20180519
  Transmission Date: 20180711
  Serious: Yes (Other)
  Sender: FDA-Public Use
  Company Number: None

PATIENT
  Age: 76 Year
  Sex: Male

DRUGS (14)
  1. FLOMAX [Concomitant]
     Active Substance: TAMSULOSIN HYDROCHLORIDE
  2. IRON [Concomitant]
     Active Substance: IRON
  3. METOPROLOL. [Concomitant]
     Active Substance: METOPROLOL
  4. OSTEO BIFLEX [Concomitant]
     Active Substance: CHONDROITIN SULFATE A\GLUCOSAMINE
  5. BOSULIF [Suspect]
     Active Substance: BOSUTINIB MONOHYDRATE
     Indication: PRODUCT USED FOR UNKNOWN INDICATION
  6. AMBIEN [Concomitant]
     Active Substance: ZOLPIDEM TARTRATE
  7. PLAVIX [Concomitant]
     Active Substance: CLOPIDOGREL BISULFATE
  8. FUROSEMIDE. [Concomitant]
     Active Substance: FUROSEMIDE
  9. MULTIPLE VITAMIN [Concomitant]
     Active Substance: VITAMINS
  10. VITAMIN C [Concomitant]
     Active Substance: ASCORBIC ACID
  11. FEXOFENADINE [Concomitant]
     Active Substance: FEXOFENADINE\FEXOFENADINE HYDROCHLORIDE
  12. STOOL SOFTENER (DOCUSATE) [Concomitant]
     Active Substance: DOCUSATE
  13. TASIGNA [Suspect]
     Active Substance: NILOTINIB
     Indication: MYELOID LEUKAEMIA
     Route: 048
     Dates: start: 20170306
  14. OMEPRAZOLE. [Concomitant]
     Active Substance: OMEPRAZOLE

REACTIONS (1)
  - Cerebrovascular accident [None]

NARRATIVE: CASE EVENT DATE: 20171204
